FAERS Safety Report 9855079 (Version 1)
Quarter: 2014Q1

REPORT INFORMATION
  Report Type: Spontaneous
  Country: US (occurrence: US)
  Receive Date: 20140130
  Receipt Date: 20140130
  Transmission Date: 20141002
  Serious: No
  Sender: FDA-Public Use
  Company Number: US-009507513-1401USA014015

PATIENT
  Sex: Female

DRUGS (1)
  1. CLARITIN-D-24 [Suspect]
     Indication: PRODUCT USED FOR UNKNOWN INDICATION
     Dosage: UNK, UNKNOWN
     Route: 048

REACTIONS (7)
  - Chest discomfort [Unknown]
  - Abnormal dreams [Unknown]
  - Nausea [Unknown]
  - Fatigue [Unknown]
  - Thirst [Unknown]
  - Dizziness [Unknown]
  - Poor quality sleep [Unknown]
